FAERS Safety Report 8342778-0 (Version None)
Quarter: 2012Q2

REPORT INFORMATION
  Report Type: 
  Country: None (occurrence: None)
  Receive Date: 20120508
  Receipt Date: 20120504
  Transmission Date: 20120825
  Serious: Yes (Hospitalization)
  Sender: FDA-Public Use
  Company Number: AT-AMGEN-KDC407767

PATIENT
  Age: 45 Year
  Sex: Female
  Weight: 63 kg

DRUGS (4)
  1. DOCETAXEL [Concomitant]
     Dosage: 165 MG, Q3WK
     Route: 042
     Dates: start: 20100225
  2. NEULASTA [Suspect]
     Indication: PRODUCT USED FOR UNKNOWN INDICATION
     Dosage: 6 MG, UNK
     Dates: start: 20100409, end: 20100409
  3. TRASTUZUMAB [Concomitant]
     Indication: BREAST CANCER
     Dosage: 366 MG, Q3WK
     Route: 042
     Dates: start: 20100225
  4. BEVACIZUMAB [Concomitant]
     Indication: BREAST CANCER
     Dosage: 915 MG, Q3WK
     Route: 042
     Dates: start: 20100225

REACTIONS (2)
  - DEVICE RELATED INFECTION [None]
  - INFECTION [None]
